FAERS Safety Report 9557685 (Version 1)
Quarter: 2013Q3

REPORT INFORMATION
  Report Type: Spontaneous
  Country: US (occurrence: None)
  Receive Date: 20130724
  Receipt Date: 20130724
  Transmission Date: 20140515
  Serious: Yes (Other)
  Sender: FDA-Public Use
  Company Number: PHEH2012US023684

PATIENT
  Age: 68 Year
  Sex: Male

DRUGS (5)
  1. GLEEVEC (IMATINIB) [Suspect]
     Indication: NEOPLASM MALIGNANT
     Route: 048
  2. AMLODIPINE [Concomitant]
  3. SERTRALINE [Concomitant]
  4. CARDOLOL (PROPRANOLOL HYDROCHLORIDE) [Concomitant]
  5. TRIAMTERENE [Concomitant]

REACTIONS (3)
  - Malignant neoplasm progression [None]
  - Drug resistance [None]
  - Drug ineffective [None]
